FAERS Safety Report 23686225 (Version 1)
Quarter: 2024Q1

REPORT INFORMATION
  Report Type: Report from Study
  Country: AR (occurrence: AR)
  Receive Date: 20240329
  Receipt Date: 20240329
  Transmission Date: 20240410
  Serious: Yes (Hospitalization)
  Sender: FDA-Public Use
  Company Number: AR-ABBVIE-5696810

PATIENT
  Sex: Female

DRUGS (1)
  1. RINVOQ [Suspect]
     Active Substance: UPADACITINIB
     Indication: Crohn^s disease
     Dosage: FORM STRENGTH: 45 MILLIGRAM?MODIFIED-RELEASE FILM-COATED TABLET
     Route: 048
     Dates: start: 20231130, end: 20240321

REACTIONS (2)
  - Pyrexia [Unknown]
  - White blood cell count increased [Unknown]
